FAERS Safety Report 22399229 (Version 1)
Quarter: 2023Q2

REPORT INFORMATION
  Report Type: Spontaneous
  Country: US (occurrence: US)
  Receive Date: 20230602
  Receipt Date: 20230602
  Transmission Date: 20230722
  Serious: No
  Sender: FDA-Public Use
  Company Number: US-ARBOR PHARMACEUTICALS, LLC-US-2022ARB001360

PATIENT
  Sex: Female

DRUGS (3)
  1. HORIZANT [Suspect]
     Active Substance: GABAPENTIN ENACARBIL
     Indication: Nerve injury
     Dosage: UNK
     Dates: start: 2013
  2. HORIZANT [Suspect]
     Active Substance: GABAPENTIN ENACARBIL
     Dosage: 4 DF, QD
  3. HORIZANT [Suspect]
     Active Substance: GABAPENTIN ENACARBIL
     Dosage: UNK UNK, BID

REACTIONS (1)
  - Off label use [Unknown]
